FAERS Safety Report 19607475 (Version 2)
Quarter: 2021Q3

REPORT INFORMATION
  Report Type: Spontaneous
  Country: IT (occurrence: IT)
  Receive Date: 20210726
  Receipt Date: 20210817
  Transmission Date: 20211014
  Serious: Yes (Other)
  Sender: FDA-Public Use
  Company Number: IT-TEVA-2021-IT-1935726

PATIENT
  Age: 58 Year
  Sex: Female

DRUGS (5)
  1. PRALSETINIB. [Suspect]
     Active Substance: PRALSETINIB
     Indication: LUNG ADENOCARCINOMA STAGE III
     Dosage: OFF LABEL USE; ACTION TAKEN: TEMPORARILY DISCONTINUED AND THEN RESTARTED IN A REDUCED DOSE
     Route: 065
     Dates: start: 20200814
  2. PEMETREXED. [Suspect]
     Active Substance: PEMETREXED
     Indication: LUNG ADENOCARCINOMA STAGE III
     Dosage: PEMETREXED (4 CYCLES), FOLLOWED BY MAINTENANCE THERAPY WITH PEMETREXED ONLY
     Route: 065
     Dates: start: 201802
  3. DENOSUMAB [Concomitant]
     Active Substance: DENOSUMAB
     Indication: LUNG ADENOCARCINOMA STAGE III
     Dosage: SECOND?LINE
     Route: 065
     Dates: start: 201909
  4. CARBOPLATIN. [Suspect]
     Active Substance: CARBOPLATIN
     Indication: LUNG ADENOCARCINOMA STAGE III
     Route: 065
     Dates: start: 201802
  5. ATEZOLIZUMAB. [Concomitant]
     Active Substance: ATEZOLIZUMAB
     Indication: LUNG ADENOCARCINOMA STAGE III
     Dosage: SECOND?LINE
     Route: 065
     Dates: start: 201909

REACTIONS (5)
  - Hypophosphataemia [Recovered/Resolved]
  - Anaemia [Recovered/Resolved]
  - Nephropathy toxic [Unknown]
  - Off label use [Unknown]
  - Neutropenia [Recovered/Resolved]
